FAERS Safety Report 5318758-6 (Version None)
Quarter: 2007Q2

REPORT INFORMATION
  Report Type: 
  Country: None (occurrence: None)
  Receive Date: 20070508
  Receipt Date: 20070412
  Transmission Date: 20071010
  Serious: Yes (Hospitalization)
  Sender: FDA-Public Use
  Company Number: ES-BAYER-200712125GDS

PATIENT
  Age: 60 Year
  Sex: Male
  Weight: 61 kg

DRUGS (11)
  1. SORAFENIB OR PLACEBO [Suspect]
     Indication: NON-SMALL CELL LUNG CANCER
     Dosage: TOTAL DAILY DOSE: 800 MG
     Route: 048
     Dates: start: 20070321
  2. CISPLATIN [Suspect]
     Indication: NON-SMALL CELL LUNG CANCER
     Route: 042
     Dates: start: 20070321, end: 20070321
  3. CISPLATIN [Suspect]
     Route: 042
     Dates: start: 20070411, end: 20070411
  4. GEMCITABINE HCL [Suspect]
     Indication: NON-SMALL CELL LUNG CANCER
     Route: 042
     Dates: start: 20070418, end: 20070418
  5. GEMCITABINE HCL [Suspect]
     Route: 042
     Dates: start: 20070321, end: 20070321
  6. GEMCITABINE HCL [Suspect]
     Route: 042
     Dates: start: 20070328, end: 20070328
  7. GEMCITABINE HCL [Suspect]
     Route: 042
     Dates: start: 20070411, end: 20070411
  8. TAZOCEL [Concomitant]
     Indication: INFECTION PROPHYLAXIS
     Route: 042
     Dates: start: 20070407, end: 20070410
  9. NEUPOGEN [Concomitant]
     Indication: NEUTROPENIA
     Route: 058
     Dates: start: 20070407, end: 20070409
  10. CIPROFLOXACIN [Concomitant]
     Indication: INFECTION PROPHYLAXIS
     Route: 042
     Dates: start: 20070410, end: 20070410
  11. AMOXICILLIN W/CLAVULANIC ACID [Concomitant]
     Indication: INFECTION PROPHYLAXIS
     Route: 048
     Dates: start: 20070410, end: 20070417

REACTIONS (3)
  - EPISTAXIS [None]
  - PULMONARY EMBOLISM [None]
  - THROMBOCYTOPENIA [None]
